FAERS Safety Report 9008350 (Version 12)
Quarter: 2013Q3

REPORT INFORMATION
  Report Type: Spontaneous
  Country: FR (occurrence: FR)
  Receive Date: 20130111
  Receipt Date: 20130725
  Transmission Date: 20140515
  Serious: Yes (Hospitalization, Other)
  Sender: FDA-Public Use
  Company Number: FR-SANOFI-AVENTIS-2013SA001633

PATIENT
  Age: 63 Year
  Sex: Female
  Weight: 44 kg

DRUGS (27)
  1. LASILIX [Suspect]
     Indication: PRODUCT USED FOR UNKNOWN INDICATION
     Route: 065
     Dates: start: 201205
  2. LASILIX [Suspect]
     Indication: PRODUCT USED FOR UNKNOWN INDICATION
     Route: 042
  3. DOXORUBICIN [Suspect]
     Indication: NEOPLASM MALIGNANT
     Dosage: FORM: LIQUID
     Route: 042
     Dates: start: 20121210
  4. INVESTIGATIONAL DRUG [Concomitant]
     Indication: NEOPLASM MALIGNANT
     Dosage: 1000MG ONCE A DAY FOR 3 DAYS
     Route: 048
     Dates: start: 20121210
  5. INVESTIGATIONAL DRUG [Concomitant]
     Indication: NEOPLASM MALIGNANT
     Route: 048
     Dates: start: 20130107
  6. KALEORID [Concomitant]
     Dates: start: 201205
  7. KALEORID [Concomitant]
     Dates: start: 20121222
  8. FUNGIZONE [Concomitant]
     Dates: start: 20121218
  9. XYLOCAINE [Concomitant]
     Dates: start: 20121218
  10. INEGY [Concomitant]
     Dates: start: 201210
  11. LEXOMIL [Concomitant]
     Dates: start: 201206
  12. INEXIUM [Concomitant]
     Dates: start: 201206
  13. FERROUS SULFATE [Concomitant]
     Dates: start: 201211
  14. DUROGESIC [Concomitant]
     Dates: start: 201211
  15. DUROGESIC [Concomitant]
     Dates: start: 20121218
  16. LEVOTHYROX [Concomitant]
     Dates: start: 2010
  17. LEVOTHYROX [Concomitant]
  18. ATARAX [Concomitant]
     Dates: start: 20130121
  19. GIVALEX [Concomitant]
     Dates: start: 20121218
  20. VOGALENE [Concomitant]
  21. SOLUPRED [Concomitant]
  22. MORPHINE SULFATE [Concomitant]
  23. KARDEGIC [Concomitant]
  24. EUPANTOL [Concomitant]
     Dates: start: 20130121
  25. ALDACTONE [Concomitant]
     Dates: start: 20130121
  26. TRINITRINE [Concomitant]
  27. AUGMENTIN [Concomitant]

REACTIONS (3)
  - Hypokalaemia [Recovered/Resolved]
  - Febrile neutropenia [Recovered/Resolved]
  - Syncope [Recovered/Resolved]
